FAERS Safety Report 18673465 (Version 1)
Quarter: 2020Q4

REPORT INFORMATION
  Report Type: Spontaneous
  Country: FI (occurrence: FI)
  Receive Date: 20201228
  Receipt Date: 20201228
  Transmission Date: 20210114
  Serious: Yes (Other)
  Sender: FDA-Public Use
  Company Number: FI-BAYER-2020-286242

PATIENT
  Sex: Female

DRUGS (4)
  1. CIPROXIN 500 MG [Suspect]
     Active Substance: CIPROFLOXACIN
     Indication: FISTULA
  2. SPORANOX [Concomitant]
     Active Substance: ITRACONAZOLE
  3. CIPROXIN 500 MG [Suspect]
     Active Substance: CIPROFLOXACIN
     Indication: PSEUDOMONAS INFECTION
     Dosage: 500 MG
     Dates: start: 2018
  4. FLAGYL [Concomitant]
     Active Substance: METRONIDAZOLE\METRONIDAZOLE HYDROCHLORIDE

REACTIONS (18)
  - Raynaud^s phenomenon [None]
  - Weight decreased [None]
  - Dyspnoea [None]
  - Gingival disorder [None]
  - Heart rate increased [None]
  - Skin disorder [None]
  - Muscular weakness [None]
  - Polyuria [None]
  - Affective disorder [None]
  - Anxiety [Recovered/Resolved]
  - Butterfly rash [None]
  - Glossodynia [None]
  - Defaecation urgency [None]
  - Burning sensation [None]
  - Pyrexia [None]
  - Thyroxine increased [Recovered/Resolved]
  - Hyperhidrosis [None]
  - Paraesthesia [None]

NARRATIVE: CASE EVENT DATE: 2018
